FAERS Safety Report 14919809 (Version 1)
Quarter: 2018Q2

REPORT INFORMATION
  Report Type: Spontaneous
  Country: US (occurrence: US)
  Receive Date: 20180502
  Receipt Date: 20180502
  Transmission Date: 20180711
  Serious: Yes (Disabling, Other)
  Sender: FDA-Public Use
  Company Number: None

PATIENT
  Age: 12 Year
  Sex: Female
  Weight: 86.85 kg

DRUGS (1)
  1. MIRALAX [Suspect]
     Active Substance: POLYETHYLENE GLYCOL 3350
     Indication: CONSTIPATION
     Dates: start: 20080101, end: 20140501

REACTIONS (8)
  - Fear [None]
  - Insomnia [None]
  - Irritability [None]
  - Obsessive-compulsive disorder [None]
  - Hallucination, auditory [None]
  - Weight increased [None]
  - Anxiety [None]
  - Vomiting [None]

NARRATIVE: CASE EVENT DATE: 20160711
